FAERS Safety Report 18887519 (Version 2)
Quarter: 2021Q2

REPORT INFORMATION
  Report Type: Spontaneous
  Country: JP (occurrence: JP)
  Receive Date: 20210212
  Receipt Date: 20210618
  Transmission Date: 20210717
  Serious: Yes (Hospitalization)
  Sender: FDA-Public Use
  Company Number: JP-ELI_LILLY_AND_COMPANY-JP202012000676

PATIENT
  Age: 85 Year
  Sex: Female

DRUGS (5)
  1. FOLIAMIN [FOLIC ACID] [Concomitant]
     Indication: FOLATE DEFICIENCY
     Dosage: 5 MG, DAILY
     Route: 048
     Dates: start: 20160315, end: 20200218
  2. RHEUMATREX [Suspect]
     Active Substance: METHOTREXATE SODIUM
     Indication: RHEUMATOID ARTHRITIS
     Dosage: 2 MG, WEEKLY (1/W)
     Route: 048
     Dates: start: 20160315, end: 20200218
  3. MAGMITT [Concomitant]
     Active Substance: MAGNESIUM OXIDE
     Indication: CONSTIPATION
     Dosage: 660 MG, DAILY
     Route: 048
     Dates: start: 20160315
  4. OLUMIANT [Suspect]
     Active Substance: BARICITINIB
     Indication: RHEUMATOID ARTHRITIS
     Dosage: 4 MG, DAILY
     Route: 048
     Dates: start: 20190613, end: 20200218
  5. CALONAL [Concomitant]
     Active Substance: ACETAMINOPHEN
     Indication: RHEUMATOID ARTHRITIS
     Dosage: 800 MG, DAILY
     Route: 048
     Dates: start: 20161025, end: 20200218

REACTIONS (1)
  - Gastric ulcer haemorrhage [Recovering/Resolving]

NARRATIVE: CASE EVENT DATE: 20200216
